FAERS Safety Report 11998945 (Version 2)
Quarter: 2016Q3

REPORT INFORMATION
  Report Type: Spontaneous
  Country: US (occurrence: US)
  Receive Date: 20160203
  Receipt Date: 20160825
  Transmission Date: 20161109
  Serious: Yes (Other)
  Sender: FDA-Public Use
  Company Number: US-UCBSA-2016000732

PATIENT
  Age: 38 Year
  Sex: Female

DRUGS (4)
  1. CIMZIA [Suspect]
     Active Substance: CERTOLIZUMAB PEGOL
     Indication: CROHN^S DISEASE
     Dosage: 400 MG, EV 4 WEEKS (STRENGTH: 200 MG)
     Route: 058
  2. ENTOCORT EC [Concomitant]
     Active Substance: BUDESONIDE
     Indication: PRODUCT USED FOR UNKNOWN INDICATION
     Dosage: UNK
  3. HUMIRA [Concomitant]
     Active Substance: ADALIMUMAB
     Indication: PRODUCT USED FOR UNKNOWN INDICATION
     Dosage: 40 MG, EV 2 WEEKS(QOW)
     Route: 058
     Dates: start: 2013
  4. METHOTREXATE SODIUM. [Concomitant]
     Active Substance: METHOTREXATE SODIUM
     Indication: PRODUCT USED FOR UNKNOWN INDICATION
     Dosage: UNK

REACTIONS (1)
  - Ingrowing nail [Unknown]
